FAERS Safety Report 5941897-3 (Version None)
Quarter: 2008Q4

REPORT INFORMATION
  Report Type: 
  Country: None (occurrence: None)
  Receive Date: 20081031
  Receipt Date: 20081024
  Transmission Date: 20090506
  Serious: Yes (Other)
  Sender: FDA-Public Use
  Company Number: CERZ-1000401

PATIENT
  Age: 18 Year
  Sex: Female

DRUGS (1)
  1. CEREZYME [Suspect]
     Indication: GAUCHER'S DISEASE
     Dosage: INTRAVENOUS
     Route: 042
     Dates: start: 19970505

REACTIONS (5)
  - COUGH [None]
  - HEPATIC FUNCTION ABNORMAL [None]
  - HYDROCEPHALUS [None]
  - ROAD TRAFFIC ACCIDENT [None]
  - THROAT TIGHTNESS [None]
